FAERS Safety Report 4576120-8 (Version None)
Quarter: 2005Q1

REPORT INFORMATION
  Report Type: 
  Country: None (occurrence: None)
  Receive Date: 20050209
  Receipt Date: 20050128
  Transmission Date: 20050727
  Serious: Yes (Hospitalization)
  Sender: FDA-Public Use
  Company Number: JP-JNJFOC-20050102769

PATIENT
  Sex: Female
  Weight: 55 kg

DRUGS (20)
  1. REMICADE [Suspect]
     Route: 042
  2. REMICADE [Suspect]
     Route: 042
  3. REMICADE [Suspect]
     Indication: RHEUMATOID ARTHRITIS
     Route: 042
  4. SOLU-MEDROL [Concomitant]
     Indication: RHEUMATOID ARTHRITIS
     Dosage: 2 MG TAB.
     Route: 049
  5. METHOTREXATE [Concomitant]
     Route: 049
  6. METHOTREXATE [Concomitant]
     Indication: RHEUMATOID ARTHRITIS
     Route: 049
  7. LOXONIN [Concomitant]
     Indication: RHEUMATOID ARTHRITIS
     Dosage: 60MG TABLET
     Route: 049
  8. ADEFURONIC SP [Concomitant]
     Indication: RHEUMATOID ARTHRITIS
     Dosage: 50 MG
  9. FOLIAMIN [Concomitant]
     Route: 049
  10. WARFARIN SODIUM [Concomitant]
     Dosage: 1 MG TABLET.
     Route: 049
  11. TAKEPRON [Concomitant]
     Route: 049
  12. MUCOSTA [Concomitant]
     Route: 049
  13. OPYSTAN [Concomitant]
     Route: 049
  14. FOSAMAC [Concomitant]
     Route: 049
  15. HALCION [Concomitant]
     Route: 049
  16. ALIMAN [Concomitant]
     Route: 049
  17. TINELAC [Concomitant]
     Dosage: 12MG TABLET
     Route: 049
  18. FERROMIA [Concomitant]
     Dosage: 50MG TABLET
     Route: 049
  19. OPALMON [Concomitant]
     Route: 049
  20. DIAZEPAM [Concomitant]
     Dosage: 2MG TABLET.
     Route: 049

REACTIONS (2)
  - DRUG INEFFECTIVE [None]
  - EXANTHEM [None]
